FAERS Safety Report 8276995-5 (Version None)
Quarter: 2012Q2

REPORT INFORMATION
  Report Type: 
  Country: None (occurrence: None)
  Receive Date: 20120412
  Receipt Date: 20120403
  Transmission Date: 20120825
  Serious: Yes (Hospitalization)
  Sender: FDA-Public Use
  Company Number: AU-ASTRAZENECA-2012SE22530

PATIENT
  Age: 84 Year
  Sex: Male

DRUGS (4)
  1. ASPIRIN AND DIPYRIDAMOLE [Concomitant]
  2. OSTELIN 1000 [Concomitant]
  3. RABEPRAZOLE SODIUM [Concomitant]
  4. CRESTOR [Suspect]
     Route: 048
     Dates: end: 20120121

REACTIONS (3)
  - RENAL IMPAIRMENT [None]
  - BLOOD CREATINE PHOSPHOKINASE INCREASED [None]
  - MUSCULAR WEAKNESS [None]
